FAERS Safety Report 6669147-3 (Version None)
Quarter: 2010Q2

REPORT INFORMATION
  Report Type: 
  Country: None (occurrence: None)
  Receive Date: 20100406
  Receipt Date: 20100329
  Transmission Date: 20101027
  Serious: Yes (Other)
  Sender: FDA-Public Use
  Company Number: US-MERCK-1003USA02717

PATIENT

DRUGS (1)
  1. FOSAMAX [Suspect]
     Dosage: OVER 5 YEARS
     Route: 048

REACTIONS (1)
  - FEMUR FRACTURE [None]
